FAERS Safety Report 14055660 (Version 3)
Quarter: 2018Q1

REPORT INFORMATION
  Report Type: Report from Study
  Country: None (occurrence: US)
  Receive Date: 20171006
  Receipt Date: 20180227
  Transmission Date: 20180508
  Serious: Yes (Other)
  Sender: FDA-Public Use
  Company Number: US-ABBVIE-17K-163-2118389-00

PATIENT
  Age: 24 Year
  Sex: Female

DRUGS (14)
  1. PREDNISOLONE ACETATE. [Concomitant]
     Active Substance: PREDNISOLONE ACETATE
     Dosage: INTO LEFT EYE
  2. LATANOPROST. [Concomitant]
     Active Substance: LATANOPROST
     Indication: PRODUCT USED FOR UNKNOWN INDICATION
     Dosage: BOTH EYES EVERY EVENING
     Route: 047
  3. TIMOLOL. [Concomitant]
     Active Substance: TIMOLOL
     Indication: PRODUCT USED FOR UNKNOWN INDICATION
  4. PREDNISOLONE ACETATE. [Concomitant]
     Active Substance: PREDNISOLONE ACETATE
     Indication: PRODUCT USED FOR UNKNOWN INDICATION
  5. DORZOLAMIDE/TIMOLOL [Concomitant]
     Active Substance: DORZOLAMIDE\TIMOLOL
     Indication: PRODUCT USED FOR UNKNOWN INDICATION
     Dosage: 22.3MG/6.8MG
  6. FLURESS [Concomitant]
     Active Substance: BENOXINATE HYDROCHLORIDE\FLUORESCEIN SODIUM
     Indication: PRODUCT USED FOR UNKNOWN INDICATION
  7. DORZOLAMIDE HYDROCHLORIDE. [Concomitant]
     Active Substance: DORZOLAMIDE HYDROCHLORIDE
     Indication: PRODUCT USED FOR UNKNOWN INDICATION
     Route: 047
  8. DORZOLAMIDE HYDROCHLORIDE. [Concomitant]
     Active Substance: DORZOLAMIDE HYDROCHLORIDE
     Route: 047
  9. TIMOLOL MALEATE. [Concomitant]
     Active Substance: TIMOLOL MALEATE
     Indication: PRODUCT USED FOR UNKNOWN INDICATION
     Dosage: INTO BOTH EYES
     Route: 047
  10. BRIMONIDINE TARTRATE. [Concomitant]
     Active Substance: BRIMONIDINE TARTRATE
     Indication: PRODUCT USED FOR UNKNOWN INDICATION
     Dosage: RIGHT EYE
     Route: 047
  11. RISPERIDONE. [Concomitant]
     Active Substance: RISPERIDONE
     Indication: PRODUCT USED FOR UNKNOWN INDICATION
     Route: 048
  12. HUMIRA [Suspect]
     Active Substance: ADALIMUMAB
     Indication: UVEITIS
     Dosage: 10MG/0.2ML
     Route: 058
     Dates: start: 20170201
  13. HUMIRA [Suspect]
     Active Substance: ADALIMUMAB
     Indication: RETINAL VASCULITIS
  14. LORAZEPAM. [Concomitant]
     Active Substance: LORAZEPAM
     Indication: PRODUCT USED FOR UNKNOWN INDICATION
     Route: 048

REACTIONS (2)
  - Eye discharge [Unknown]
  - Off label use [Not Recovered/Not Resolved]
